FAERS Safety Report 17000845 (Version 4)
Quarter: 2020Q1

REPORT INFORMATION
  Report Type: Report from Study
  Country: PT (occurrence: PT)
  Receive Date: 20191106
  Receipt Date: 20200220
  Transmission Date: 20200409
  Serious: Yes (Hospitalization)
  Sender: FDA-Public Use
  Company Number: PT-ROCHE-2454157

PATIENT
  Age: 44 Year
  Sex: Female
  Weight: 46.5 kg

DRUGS (21)
  1. PERTUZUMAB. [Suspect]
     Active Substance: PERTUZUMAB
     Indication: HER-2 POSITIVE BREAST CANCER
     Dosage: LOADING DOSE
     Route: 042
     Dates: start: 20190418
  2. PREDNISOLONE. [Concomitant]
     Active Substance: PREDNISOLONE
     Route: 048
     Dates: start: 20191025, end: 20191028
  3. TAMOXIFEN [Concomitant]
     Active Substance: TAMOXIFEN
     Route: 048
     Dates: start: 20190215
  4. IBUPROFEN. [Concomitant]
     Active Substance: IBUPROFEN
     Route: 048
     Dates: start: 20191106, end: 20191123
  5. ERYTHROMYCIN. [Concomitant]
     Active Substance: ERYTHROMYCIN
     Route: 061
     Dates: start: 20191003, end: 20191026
  6. GABAPENTINE [Concomitant]
     Active Substance: GABAPENTIN
     Indication: PAIN IN EXTREMITY
     Dosage: SCAPULAR AND RIGHT UPPER LIMB PAIN
     Route: 048
     Dates: start: 20191127
  7. TRASTUZUMAB. [Suspect]
     Active Substance: TRASTUZUMAB
     Indication: HER-2 POSITIVE BREAST CANCER
     Dosage: MOST RECENT DOSE PRIOR TO EVENT ONSET ON 18/APR/2019 AT 15:25 (288 MG)?TRASTUZUMAB WILL BE ADMINISTE
     Route: 042
     Dates: start: 20190418
  8. PARACETAMOL [Concomitant]
     Active Substance: ACETAMINOPHEN
     Route: 048
     Dates: start: 20190107
  9. IBUPROFEN. [Concomitant]
     Active Substance: IBUPROFEN
     Indication: ODYNOPHAGIA
     Route: 048
     Dates: start: 20190107
  10. NISTATIN [Concomitant]
     Active Substance: NYSTATIN
     Indication: STOMATITIS
     Route: 048
     Dates: start: 20190703
  11. CAPHOSOL [CALCIUM CHLORIDE;SODIUM CHLORIDE;SODIUM PHOSPHATE DIBASIC;SO [Concomitant]
     Route: 048
     Dates: start: 20191106, end: 20191123
  12. LOPERAMIDE [Concomitant]
     Active Substance: LOPERAMIDE
     Indication: DIARRHOEA
     Route: 048
     Dates: start: 20190801
  13. EBASTINE [Concomitant]
     Active Substance: EBASTINE
     Indication: RASH
     Route: 048
     Dates: start: 20190912
  14. FLUCLOXACILLIN [Concomitant]
     Active Substance: FLUCLOXACILLIN
     Route: 048
     Dates: start: 20191024, end: 20191101
  15. PERTUZUMAB. [Suspect]
     Active Substance: PERTUZUMAB
     Dosage: MOST RECENT DOSE PRIOR TO EVENT ONSET ON 09/MAY/2019 (15:10): 420 MG?MAINTENANCE DOSE
     Route: 042
     Dates: start: 20190509
  16. NISTATIN [Concomitant]
     Active Substance: NYSTATIN
     Route: 048
     Dates: start: 20191106, end: 20191123
  17. CALCIUM PHOSPHATE [Concomitant]
     Active Substance: CALCIUM PHOSPHATE
     Indication: PHARYNGEAL INFLAMMATION
     Route: 048
     Dates: start: 20190915, end: 20190921
  18. PREDNISOLONE. [Concomitant]
     Active Substance: PREDNISOLONE
     Route: 048
     Dates: start: 20191022
  19. NISTATIN [Concomitant]
     Active Substance: NYSTATIN
     Indication: PHARYNGEAL INFLAMMATION
     Route: 048
     Dates: start: 20190915, end: 20190921
  20. METAMIZOLE [Concomitant]
     Active Substance: METAMIZOLE
     Route: 048
     Dates: start: 20190916, end: 20191003
  21. IBUPROFEN. [Concomitant]
     Active Substance: IBUPROFEN
     Route: 048
     Dates: start: 20190916, end: 20191003

REACTIONS (1)
  - Bronchopulmonary aspergillosis [Recovering/Resolving]

NARRATIVE: CASE EVENT DATE: 20191020
